FAERS Safety Report 15128799 (Version 3)
Quarter: 2018Q4

REPORT INFORMATION
  Report Type: Spontaneous
  Country: US (occurrence: US)
  Receive Date: 20180711
  Receipt Date: 20181004
  Transmission Date: 20190204
  Serious: No
  Sender: FDA-Public Use
  Company Number: US-BAUSCH-BL-2018-018872

PATIENT
  Age: 55 Year
  Sex: Female

DRUGS (4)
  1. LACTULOSE. [Concomitant]
     Active Substance: LACTULOSE
     Indication: PRODUCT USED FOR UNKNOWN INDICATION
  2. VITAMINS [Concomitant]
     Active Substance: VITAMINS
     Indication: PRODUCT USED FOR UNKNOWN INDICATION
  3. XIFAXAN [Suspect]
     Active Substance: RIFAXIMIN
     Dosage: RE-STARTED
     Route: 048
     Dates: start: 201807
  4. XIFAXAN [Suspect]
     Active Substance: RIFAXIMIN
     Indication: HEPATIC ENCEPHALOPATHY PROPHYLAXIS
     Dosage: STARTED ABOUT AN YEAR AND HALF AGO
     Route: 048
     Dates: start: 2017, end: 201806

REACTIONS (4)
  - Thinking abnormal [Recovered/Resolved]
  - Therapy cessation [Recovered/Resolved]
  - Inability to afford medication [Recovered/Resolved]
  - Speech disorder [Recovered/Resolved]

NARRATIVE: CASE EVENT DATE: 201806
